FAERS Safety Report 13122905 (Version 2)
Quarter: 2017Q1

REPORT INFORMATION
  Report Type: Spontaneous
  Country: IT (occurrence: IT)
  Receive Date: 20170117
  Receipt Date: 20170217
  Transmission Date: 20170428
  Serious: Yes (Other)
  Sender: FDA-Public Use
  Company Number: IT-PFIZER INC-2017016602

PATIENT
  Age: 64 Year
  Sex: Female

DRUGS (3)
  1. PREDNISONE. [Concomitant]
     Active Substance: PREDNISONE
     Dosage: 37.5 MG, UNK
     Route: 048
  2. PREDNISONE. [Concomitant]
     Active Substance: PREDNISONE
     Indication: STILL^S DISEASE ADULT ONSET
     Dosage: 25 MG, DAILY
     Route: 048
  3. METHOTREXATE. [Suspect]
     Active Substance: METHOTREXATE
     Indication: STILL^S DISEASE ADULT ONSET
     Dosage: 15 MG, WEEKLY

REACTIONS (2)
  - Neurofibromatosis [Unknown]
  - Condition aggravated [Unknown]
